FAERS Safety Report 20174689 (Version 2)
Quarter: 2021Q4

REPORT INFORMATION
  Report Type: Spontaneous
  Country: TH (occurrence: TH)
  Receive Date: 20211213
  Receipt Date: 20211222
  Transmission Date: 20220303
  Serious: Yes (Hospitalization, Other)
  Sender: FDA-Public Use
  Company Number: TH-Accord-247000

PATIENT
  Age: 48 Year
  Sex: Female

DRUGS (2)
  1. MYCOPHENOLATE MOFETIL [Suspect]
     Active Substance: MYCOPHENOLATE MOFETIL
     Indication: Systemic lupus erythematosus
  2. PREDNISOLONE [Suspect]
     Active Substance: PREDNISOLONE
     Indication: Systemic lupus erythematosus

REACTIONS (3)
  - Varicella zoster virus infection [Recovering/Resolving]
  - Infection reactivation [Recovering/Resolving]
  - Herpes zoster cutaneous disseminated [Recovering/Resolving]

NARRATIVE: CASE EVENT DATE: 20210701
